FAERS Safety Report 6174612-1 (Version None)
Quarter: 2009Q2

REPORT INFORMATION
  Report Type: 
  Country: None (occurrence: None)
  Receive Date: 20090430
  Receipt Date: 20090420
  Transmission Date: 20091009
  Serious: Yes (Death, Other)
  Sender: FDA-Public Use
  Company Number: DE-GENENTECH-281913

PATIENT
  Sex: Female

DRUGS (2)
  1. TRASTUZUMAB [Suspect]
     Indication: BREAST CANCER METASTATIC
     Dosage: UNK
     Route: 065
  2. CAPECITABINE [Suspect]
     Indication: BREAST CANCER METASTATIC
     Dosage: UNK
     Route: 065

REACTIONS (9)
  - ANAEMIA [None]
  - DEATH [None]
  - DIARRHOEA [None]
  - DISEASE PROGRESSION [None]
  - LEUKOPENIA [None]
  - NAUSEA [None]
  - NEUROTOXICITY [None]
  - UNEVALUABLE EVENT [None]
  - VOMITING [None]
